FAERS Safety Report 23960530 (Version 1)
Quarter: 2024Q2

REPORT INFORMATION
  Report Type: Spontaneous
  Country: FR (occurrence: FR)
  Receive Date: 20240611
  Receipt Date: 20240611
  Transmission Date: 20240715
  Serious: Yes (Hospitalization, Other)
  Sender: FDA-Public Use
  Company Number: FR-AFSSAPS-AVCN2024000168

PATIENT
  Age: 48 Year
  Sex: Male

DRUGS (14)
  1. PAROXETINE [Suspect]
     Active Substance: PAROXETINE
     Indication: Product used for unknown indication
     Dosage: UNK
     Route: 048
     Dates: start: 20220919, end: 20220919
  2. LYSERGIDE [Suspect]
     Active Substance: LYSERGIDE
     Indication: Product used for unknown indication
     Dosage: UNK
     Route: 065
  3. OXAZEPAM [Suspect]
     Active Substance: OXAZEPAM
     Indication: Product used for unknown indication
     Dosage: UNK
     Route: 048
     Dates: start: 20220919, end: 20220919
  4. ALCOHOL [Suspect]
     Active Substance: ALCOHOL
     Indication: Product used for unknown indication
     Dosage: 15 TO 22 U/D OF VODKA
     Route: 048
     Dates: start: 2004
  5. KETAMINE [Suspect]
     Active Substance: KETAMINE
     Indication: Product used for unknown indication
     Dosage: UNK
     Route: 065
  6. MIDOMAFETAMINE [Suspect]
     Active Substance: MIDOMAFETAMINE
     Indication: Product used for unknown indication
     Dosage: UNK
     Route: 065
  7. CANNABIS SATIVA SUBSP. INDICA TOP [Suspect]
     Active Substance: CANNABIS SATIVA SUBSP. INDICA TOP
     Indication: Product used for unknown indication
     Dosage: UP TO 20 JOINTS/DAY
     Route: 055
     Dates: start: 1988
  8. SUBUTEX [Suspect]
     Active Substance: BUPRENORPHINE HYDROCHLORIDE
     Indication: Product used for unknown indication
     Dosage: UNK
     Route: 065
  9. PSILOCYBIN [Suspect]
     Active Substance: PSILOCYBIN
     Indication: Product used for unknown indication
     Dosage: UNK
     Route: 065
  10. COCAINE [Suspect]
     Active Substance: COCAINE
     Indication: Product used for unknown indication
     Dosage: ^SPEED BALL^
     Route: 040
  11. COCAINE [Suspect]
     Active Substance: COCAINE
     Dosage: UNK
     Route: 045
     Dates: start: 1989
  12. VALPROATE SODIUM [Suspect]
     Active Substance: VALPROATE SODIUM
     Indication: Product used for unknown indication
     Dosage: UNK
     Route: 048
     Dates: start: 20220919, end: 20220919
  13. HEROIN [Suspect]
     Active Substance: DIAMORPHINE
     Indication: Product used for unknown indication
     Dosage: UNK
     Route: 040
  14. CYAMEMAZINE [Suspect]
     Active Substance: CYAMEMAZINE
     Indication: Product used for unknown indication
     Dosage: UNK
     Route: 048
     Dates: start: 20220919, end: 20220919

REACTIONS (4)
  - Drug abuse [Not Recovered/Not Resolved]
  - Altered state of consciousness [Recovered/Resolved]
  - Poisoning deliberate [Recovered/Resolved]
  - Electrocardiogram QT prolonged [Unknown]

NARRATIVE: CASE EVENT DATE: 20220919
